FAERS Safety Report 6827228 (Version 3)
Quarter: 2016Q1

REPORT INFORMATION
  Report Type: Report from Study
  Country: JP (occurrence: JP)
  Receive Date: 20081201
  Receipt Date: 20160308
  Transmission Date: 20160526
  Serious: Yes (Death, Hospitalization, Other)
  Sender: FDA-Public Use
  Company Number: PHHY2008JP28267

PATIENT
  Age: 61 Year
  Sex: Female

DRUGS (7)
  1. PROHEPARUM [Concomitant]
     Active Substance: CHOLINE BITARTRATE\CYSTEINE\INOSITOL\MAMMAL LIVER
     Indication: LIVER DISORDER
     Dosage: 3 DF, QD
     Route: 065
     Dates: start: 20080125, end: 20081101
  2. ICL670A [Suspect]
     Active Substance: DEFERASIROX
     Indication: IRON OVERLOAD
     Dosage: 1000 MG, QD
     Route: 048
     Dates: start: 20080716, end: 20081101
  3. ICL670A [Suspect]
     Active Substance: DEFERASIROX
     Indication: MYELODYSPLASTIC SYNDROME
  4. CRESTOR [Concomitant]
     Active Substance: ROSUVASTATIN CALCIUM
     Indication: PRODUCT USED FOR UNKNOWN INDICATION
     Dosage: 5 MG, QD
     Route: 065
     Dates: start: 20080717, end: 20081101
  5. ADONA [Concomitant]
     Active Substance: CARBAZOCHROME SODIUM SULFONATE
     Indication: PLATELET COUNT DECREASED
     Dosage: 90 MG, QD
     Route: 065
     Dates: start: 20050831, end: 20081101
  6. ALTAT [Concomitant]
     Indication: CHRONIC GASTRITIS
     Dosage: 150 MG, UNK
     Route: 065
     Dates: start: 20050831, end: 20081101
  7. NOVORAPID [Concomitant]
     Active Substance: INSULIN ASPART
     Indication: DIABETES MELLITUS
     Dosage: UNK
     Route: 065
     Dates: start: 20080709

REACTIONS (6)
  - Cardiac failure congestive [Fatal]
  - Haemoglobin decreased [Unknown]
  - Hyperlipidaemia [Recovering/Resolving]
  - Atrial fibrillation [Not Recovered/Not Resolved]
  - Haemochromatosis [Unknown]
  - Fluid overload [Fatal]

NARRATIVE: CASE EVENT DATE: 20080717
